FAERS Safety Report 4987554-1 (Version None)
Quarter: 2006Q2

REPORT INFORMATION
  Report Type: 
  Country: None (occurrence: None)
  Receive Date: 20060501
  Receipt Date: 20050318
  Transmission Date: 20061013
  Serious: Yes (Hospitalization, Disabling)
  Sender: FDA-Public Use
  Company Number: US-MERCK-0503USA03784

PATIENT
  Age: 66 Year
  Sex: Male
  Weight: 102 kg

DRUGS (8)
  1. VIOXX [Suspect]
     Indication: ARTHRALGIA
     Route: 048
     Dates: start: 20020502, end: 20040309
  2. SINGULAIR [Concomitant]
     Route: 048
     Dates: start: 20030523
  3. SINGULAIR [Concomitant]
     Route: 048
     Dates: start: 20030725
  4. SINGULAIR [Concomitant]
     Route: 048
     Dates: start: 20030109
  5. ALBUTEROL [Concomitant]
     Route: 065
     Dates: start: 20040109, end: 20040218
  6. ACCUHIST LA [Concomitant]
     Route: 065
     Dates: start: 20040220
  7. ADVAIR DISKUS 100/50 [Concomitant]
     Route: 065
     Dates: start: 20040305
  8. TOPROL-XL [Concomitant]
     Route: 065
     Dates: start: 20040702, end: 20041201

REACTIONS (11)
  - ACUTE MYOCARDIAL INFARCTION [None]
  - ANAEMIA [None]
  - CELLULITIS [None]
  - CHEST PAIN [None]
  - CORONARY ARTERY DISEASE [None]
  - DIABETES MELLITUS NON-INSULIN-DEPENDENT [None]
  - DYSPNOEA [None]
  - GASTROOESOPHAGEAL REFLUX DISEASE [None]
  - OEDEMA PERIPHERAL [None]
  - POLYP [None]
  - RENAL FAILURE CHRONIC [None]
